FAERS Safety Report 8731206 (Version 2)
Quarter: 2013Q4

REPORT INFORMATION
  Report Type: Spontaneous
  Country: US (occurrence: US)
  Receive Date: 20120820
  Receipt Date: 20131031
  Transmission Date: 20140711
  Serious: Yes (Hospitalization)
  Sender: FDA-Public Use
  Company Number: US-009507513-2012SP033523

PATIENT
  Age: 61 Year
  Sex: Male

DRUGS (7)
  1. INTEGRILIN [Suspect]
     Indication: CORONARY ARTERY DISEASE
     Dosage: 180 ?G, UNK
     Route: 042
     Dates: start: 20120601
  2. INTEGRILIN [Suspect]
     Indication: CHEST PAIN
     Dosage: 180 ?G, UNK
     Route: 042
     Dates: start: 20120609, end: 20120609
  3. INTEGRILIN [Suspect]
     Indication: MUSCULAR WEAKNESS
  4. ASPIRIN [Concomitant]
     Indication: PRODUCT USED FOR UNKNOWN INDICATION
     Dates: start: 20120614
  5. LOPRESSOR [Concomitant]
     Indication: PRODUCT USED FOR UNKNOWN INDICATION
  6. SYNTHROID [Concomitant]
     Indication: PRODUCT USED FOR UNKNOWN INDICATION
  7. HEPARIN [Concomitant]
     Indication: PRODUCT USED FOR UNKNOWN INDICATION

REACTIONS (1)
  - Thrombocytopenia [Not Recovered/Not Resolved]
